FAERS Safety Report 19195189 (Version 4)
Quarter: 2021Q3

REPORT INFORMATION
  Report Type: Report from Study
  Country: US (occurrence: US)
  Receive Date: 20210429
  Receipt Date: 20210825
  Transmission Date: 20211014
  Serious: Yes (Hospitalization)
  Sender: FDA-Public Use
  Company Number: US-AMERICAN REGENT INC-2021001049

PATIENT
  Age: 32 Year
  Sex: Male

DRUGS (15)
  1. UROCIT?K [Concomitant]
     Active Substance: POTASSIUM CITRATE
     Indication: ROUTINE HEALTH MAINTENANCE
     Dosage: 20 MILLIEQUIVALENT, 2 IN 1 D
     Route: 048
     Dates: start: 2018
  2. OMEGA?3 TRIGLYCERIDES [Concomitant]
     Active Substance: OMEGA-3 FATTY ACIDS
     Indication: ROUTINE HEALTH MAINTENANCE
     Dosage: 1 DOSAGE FORMS (1 IN 1 D)
     Route: 048
     Dates: start: 2014
  3. NAPROSYN [Concomitant]
     Active Substance: NAPROXEN
     Indication: ARTHRALGIA
     Dosage: 1 DOSAGE FORMS, AS REQUIRED
     Route: 048
     Dates: start: 20190513
  4. DROPERIDOL INJECTION, USP (9702?25) [Suspect]
     Active Substance: DROPERIDOL
     Indication: CANNABINOID HYPEREMESIS SYNDROME
     Dosage: UNK
     Route: 042
     Dates: start: 20210321, end: 20210321
  5. VITAMIN D                          /00107901/ [Concomitant]
     Active Substance: ERGOCALCIFEROL
     Indication: ROUTINE HEALTH MAINTENANCE
     Dosage: 50000 IU, 1 IN 1 WK
     Route: 048
     Dates: start: 2017
  6. LORAZEPAM. [Concomitant]
     Active Substance: LORAZEPAM
     Indication: HYPOGLYCAEMIA
     Dosage: 0.5 MG, EVERY 8 HOURS, AS REQUIRED
     Route: 065
     Dates: start: 20200928
  7. TYLENOL [Concomitant]
     Active Substance: ACETAMINOPHEN
     Indication: HEADACHE
     Dosage: AROUND THE CLOCK
     Route: 065
     Dates: start: 202102
  8. ZOLOFT [Concomitant]
     Active Substance: SERTRALINE HYDROCHLORIDE
     Indication: ANXIETY
     Dosage: 50 MILLIGRAM, EVERY NIGHT AT BEDTIME
     Route: 048
     Dates: start: 20201116
  9. VIBRAMYCIN                         /00055702/ [Concomitant]
     Indication: EPIDIDYMITIS
     Dosage: 100 MG, 2 IN 1 D
     Route: 048
     Dates: start: 20210203
  10. CLARITIN [Concomitant]
     Active Substance: LORATADINE
     Indication: SINOBRONCHITIS
     Dosage: 10 MILLIGRAM (1 IN 1 D)
     Route: 048
     Dates: start: 201901
  11. IBUPROFEN. [Concomitant]
     Active Substance: IBUPROFEN
     Indication: ABDOMINAL PAIN
     Dosage: 600 MILLIGRAM, AS REQUIRED
     Route: 048
     Dates: start: 20200928
  12. FLONASE                            /00908302/ [Concomitant]
     Active Substance: MOMETASONE FUROATE
     Indication: SINOBRONCHITIS
     Dosage: 2 PUFF, AS REQUIRED
     Route: 045
     Dates: start: 2019
  13. PERCOCET [Concomitant]
     Active Substance: ACETAMINOPHEN\OXYCODONE HYDROCHLORIDE
     Indication: ANIMAL BITE
     Dosage: 7.5?325 MG (EVERY SIX HOURS, AS REQUIRED)
     Route: 048
     Dates: start: 20201030
  14. IBUPROFEN. [Concomitant]
     Active Substance: IBUPROFEN
     Indication: HEADACHE
     Dosage: AROUND THE CLOCK
     Route: 048
     Dates: start: 202102
  15. MULTIVITAMIN                       /07504101/ [Concomitant]
     Active Substance: VITAMINS
     Indication: ROUTINE HEALTH MAINTENANCE
     Dosage: 1 DOSAGE FORMS (1 IN 1 D)
     Route: 048
     Dates: start: 2014

REACTIONS (4)
  - Product use in unapproved indication [None]
  - Dyskinesia [Recovered/Resolved]
  - Hypoglycaemia [Recovered/Resolved]
  - Abdominal pain upper [Recovered/Resolved]

NARRATIVE: CASE EVENT DATE: 20210308
